FAERS Safety Report 12996737 (Version 1)
Quarter: 2016Q4

REPORT INFORMATION
  Report Type: Spontaneous
  Country: US (occurrence: US)
  Receive Date: 20161204
  Receipt Date: 20161204
  Transmission Date: 20170207
  Serious: Yes (Other)
  Sender: FDA-Public Use
  Company Number: US-CONCORDIA PHARMACEUTICALS INC.-GSH201609-004489

PATIENT
  Age: 68 Year
  Sex: Female

DRUGS (36)
  1. FOSAMAX [Concomitant]
     Active Substance: ALENDRONATE SODIUM
     Route: 048
  2. COLLAGEN [Concomitant]
     Active Substance: COLLAGEN
     Route: 048
  3. COENZYME Q10 [Concomitant]
     Active Substance: UBIDECARENONE
     Route: 048
  4. GINGER ROOT [Concomitant]
     Active Substance: GINGER
     Route: 048
  5. PROLIA [Concomitant]
     Active Substance: DENOSUMAB
  6. METHOTREXATE. [Concomitant]
     Active Substance: METHOTREXATE
     Route: 048
  7. CYMBALTA [Concomitant]
     Active Substance: DULOXETINE HYDROCHLORIDE
     Route: 048
  8. REMICADE [Concomitant]
     Active Substance: INFLIXIMAB
  9. SULFASALAZINE. [Concomitant]
     Active Substance: SULFASALAZINE
     Dates: start: 2012, end: 2016
  10. ASPIRIN. [Concomitant]
     Active Substance: ASPIRIN
     Route: 048
  11. PROTONIX [Concomitant]
     Active Substance: PANTOPRAZOLE SODIUM
     Route: 048
  12. VITAMIN C [Concomitant]
     Active Substance: ASCORBIC ACID
     Route: 048
  13. MULTI-VITAMIN [Concomitant]
     Active Substance: .ALPHA.-TOCOPHEROL ACETATE, DL-\ASCORBIC ACID\CYANOCOBALAMIN\FLUORIDE ION\FOLIC ACID\NIACIN\PYRIDOXINE\RIBOFLAVIN\THIAMINE\VITAMIN A\VITAMIN D
  14. PLAQUENIL [Suspect]
     Active Substance: HYDROXYCHLOROQUINE SULFATE
     Indication: RHEUMATOID ARTHRITIS
  15. XANAX [Concomitant]
     Active Substance: ALPRAZOLAM
     Indication: SLEEP DISORDER
     Route: 048
  16. LEVOTHYROXINE. [Concomitant]
     Active Substance: LEVOTHYROXINE
     Route: 048
  17. TOPROL XL [Concomitant]
     Active Substance: METOPROLOL SUCCINATE
     Route: 048
  18. XELJANZ [Concomitant]
     Active Substance: TOFACITINIB CITRATE
     Route: 048
  19. COUMADIN [Concomitant]
     Active Substance: WARFARIN SODIUM
     Indication: THROMBOSIS
  20. PARAFON FORTE [Concomitant]
     Active Substance: CHLORZOXAZONE
     Indication: MUSCLE SPASMS
     Dosage: NIGHTLY
     Route: 048
  21. GLUCOSAMINE HCL [Concomitant]
     Active Substance: GLUCOSAMINE
     Route: 048
  22. VITAMIN D [Concomitant]
     Active Substance: CHOLECALCIFEROL
     Route: 048
  23. COLACE [Concomitant]
     Active Substance: DOCUSATE SODIUM
     Route: 048
  24. TESSALON [Concomitant]
     Active Substance: BENZONATATE
     Indication: COUGH
     Route: 048
  25. FLOVENT HFA [Concomitant]
     Active Substance: FLUTICASONE PROPIONATE
     Dosage: INHALE 1 PUFF INTO THE LUNGS 2 TIMES DAILY
  26. CRANBERRY VITAMIN C VITAMIN E [Concomitant]
     Route: 048
  27. LUTEIN [Concomitant]
     Active Substance: LUTEIN
     Route: 048
  28. VITAMIN B12 [Concomitant]
     Active Substance: CYANOCOBALAMIN
     Route: 048
  29. FOLVITE [Concomitant]
     Active Substance: FOLIC ACID
     Route: 048
  30. QVAR [Concomitant]
     Active Substance: BECLOMETHASONE DIPROPIONATE
     Dosage: INHALE 2 PUFFS INTO THE LUNGS 2 TIMES DAILY
  31. LIPITOR [Concomitant]
     Active Substance: ATORVASTATIN CALCIUM
     Dosage: ONE TABLET BY MOUTH EVERY NIGHT AT BEDTIME
     Route: 048
  32. MIGRALIEF SUPPLEMENT [Concomitant]
  33. PREDNISONE. [Concomitant]
     Active Substance: PREDNISONE
  34. NORCO [Concomitant]
     Active Substance: ACETAMINOPHEN\HYDROCODONE BITARTRATE
     Indication: PAIN
     Route: 048
  35. PRINIVIL ZESTRIL [Concomitant]
     Route: 048
  36. ARAVA [Concomitant]
     Active Substance: LEFLUNOMIDE

REACTIONS (14)
  - Chronic fatigue syndrome [Unknown]
  - Nausea [Unknown]
  - Rash [Unknown]
  - Headache [Unknown]
  - Malaise [Unknown]
  - Peripheral swelling [Unknown]
  - Pain [Unknown]
  - Vision blurred [Unknown]
  - Fatigue [Unknown]
  - Migraine [Unknown]
  - Haemorrhage [Unknown]
  - Drug intolerance [Unknown]
  - Joint swelling [Unknown]
  - Influenza [Unknown]

NARRATIVE: CASE EVENT DATE: 20160311
